FAERS Safety Report 5579872-3 (Version None)
Quarter: 2008Q1

REPORT INFORMATION
  Report Type: 
  Country: None (occurrence: None)
  Receive Date: 20080102
  Receipt Date: 20071225
  Transmission Date: 20080703
  Serious: Yes (Other)
  Sender: FDA-Public Use
  Company Number: JP-PFIZER INC-2007106085

PATIENT
  Age: 57 Year
  Sex: Male

DRUGS (4)
  1. EPLERENONE TABLET [Suspect]
     Indication: HYPERTENSION
     Dosage: TEXT:TDD:50 MG
     Dates: start: 20071114, end: 20071212
  2. URSO 250 [Concomitant]
  3. NATRIX [Concomitant]
  4. ENTECAVIR [Concomitant]

REACTIONS (1)
  - HYPERGLYCAEMIA [None]
